FAERS Safety Report 6712932-X (Version None)
Quarter: 2010Q2

REPORT INFORMATION
  Report Type: 
  Country: None (occurrence: None)
  Receive Date: 20100505
  Receipt Date: 20100505
  Transmission Date: 20101027
  Serious: Yes (Other)
  Sender: FDA-Public Use
  Company Number: None

PATIENT
  Age: 55 Year
  Sex: Male
  Weight: 111.1313 kg

DRUGS (1)
  1. PEG-3350 [Suspect]
     Indication: COLONOSCOPY
     Dosage: 4 LITERS OVER 4 HOURS PO
     Route: 048
     Dates: start: 20100502, end: 20100502

REACTIONS (3)
  - BLOOD PRESSURE INCREASED [None]
  - HEADACHE [None]
  - VOMITING [None]
